FAERS Safety Report 25855679 (Version 1)
Quarter: 2025Q3

REPORT INFORMATION
  Report Type: Spontaneous
  Country: US (occurrence: US)
  Receive Date: 20250927
  Receipt Date: 20250927
  Transmission Date: 20251020
  Serious: Yes (Hospitalization)
  Sender: PRINSTON PHARMACEUTICAL
  Company Number: US-PRINSTON PHARMACEUTICAL INC.-2025PRN00312

PATIENT
  Sex: Male
  Weight: 17.6 kg

DRUGS (3)
  1. CLONIDINE HYDROCHLORIDE [Suspect]
     Active Substance: CLONIDINE HYDROCHLORIDE
     Indication: Behaviour disorder
  2. VITAMIN D [Concomitant]
     Active Substance: VITAMIN D NOS
  3. FLUTICASONE [Concomitant]
     Active Substance: FLUTICASONE

REACTIONS (4)
  - Toxic encephalopathy [Recovered/Resolved]
  - Ileus paralytic [Recovered/Resolved]
  - Product preparation error [Recovered/Resolved]
  - Overdose [Recovered/Resolved]
